FAERS Safety Report 9351733 (Version 3)
Quarter: 2013Q3

REPORT INFORMATION
  Report Type: Spontaneous
  Country: US (occurrence: US)
  Receive Date: 20130617
  Receipt Date: 20130807
  Transmission Date: 20140515
  Serious: Yes (Other)
  Sender: FDA-Public Use
  Company Number: US-BIOGENIDEC-2013BI050719

PATIENT
  Age: 32 Year
  Sex: Male
  Weight: 81 kg

DRUGS (2)
  1. TYSABRI [Suspect]
     Indication: MULTIPLE SCLEROSIS
     Route: 042
     Dates: start: 20111026, end: 20130510
  2. COUMADIN [Concomitant]
     Indication: VENA CAVA THROMBOSIS

REACTIONS (3)
  - Testicular germ cell cancer [Not Recovered/Not Resolved]
  - Oedema peripheral [Unknown]
  - Dyspnoea [Recovered/Resolved]
